FAERS Safety Report 4302298-7 (Version None)
Quarter: 2004Q1

REPORT INFORMATION
  Report Type: 
  Country: None (occurrence: None)
  Receive Date: 20040223
  Receipt Date: 20040213
  Transmission Date: 20041129
  Serious: Yes (Life-Threatening)
  Sender: FDA-Public Use
  Company Number: WAES 0402USA01196

PATIENT
  Age: 60 Year
  Sex: Female

DRUGS (2)
  1. COUGH, COLD, AND FLU THERAPIES (UNSPECIFIED) [Suspect]
     Indication: NASOPHARYNGITIS
     Route: 048
     Dates: start: 20031229
  2. COZAAR [Suspect]
     Indication: HYPERTENSION
     Route: 048
     Dates: start: 20031104, end: 20031229

REACTIONS (1)
  - ANAPHYLACTIC SHOCK [None]
